FAERS Safety Report 9509840 (Version 2)
Quarter: 2013Q3

REPORT INFORMATION
  Report Type: Spontaneous
  Country: US (occurrence: US)
  Receive Date: 20130909
  Receipt Date: 20130909
  Transmission Date: 20140515
  Serious: No
  Sender: FDA-Public Use
  Company Number: US-BRISTOL-MYERS SQUIBB COMPANY-17103813

PATIENT
  Age: 28 Year
  Sex: Female

DRUGS (2)
  1. ABILIFY [Suspect]
     Indication: BIPOLAR I DISORDER
  2. PROZAC [Suspect]
     Indication: MANIA

REACTIONS (3)
  - Pregnancy [Recovered/Resolved]
  - Live birth [Unknown]
  - Sexual dysfunction [Unknown]
